FAERS Safety Report 12244412 (Version 2)
Quarter: 2016Q2

REPORT INFORMATION
  Report Type: Report from Study
  Country: US (occurrence: US)
  Receive Date: 20160407
  Receipt Date: 20160510
  Transmission Date: 20160815
  Serious: Yes (Death, Other)
  Sender: FDA-Public Use
  Company Number: US-GILEAD-2016-0207328

PATIENT
  Age: 77 Year
  Sex: Female
  Weight: 61.22 kg

DRUGS (1)
  1. AMBRISENTAN [Suspect]
     Active Substance: AMBRISENTAN
     Indication: PRODUCT USED FOR UNKNOWN INDICATION
     Dosage: 5 MG, QD
     Route: 065

REACTIONS (2)
  - Cardiac failure congestive [Fatal]
  - Malaise [Unknown]
